FAERS Safety Report 9812029 (Version 2)
Quarter: 2016Q4

REPORT INFORMATION
  Report Type: Spontaneous
  Country: US (occurrence: US)
  Receive Date: 20140110
  Receipt Date: 20161219
  Transmission Date: 20170207
  Serious: Yes (Hospitalization, Other)
  Sender: FDA-Public Use
  Company Number: US-SA-2013SA101186

PATIENT
  Age: 47 Year
  Sex: Male
  Weight: 77 kg

DRUGS (5)
  1. PLAVIX [Suspect]
     Active Substance: CLOPIDOGREL BISULFATE
     Indication: THROMBOSIS PROPHYLAXIS
     Route: 065
     Dates: start: 20040223, end: 20111002
  2. PLAVIX [Suspect]
     Active Substance: CLOPIDOGREL BISULFATE
     Indication: THROMBOSIS PROPHYLAXIS
     Route: 065
     Dates: end: 201211
  3. PLAVIX [Suspect]
     Active Substance: CLOPIDOGREL BISULFATE
     Indication: MYOCARDIAL INFARCTION
     Route: 065
     Dates: start: 20040223, end: 20111002
  4. PLAVIX [Suspect]
     Active Substance: CLOPIDOGREL BISULFATE
     Indication: MYOCARDIAL INFARCTION
     Route: 065
     Dates: end: 201211
  5. ECOTRIN [Concomitant]
     Active Substance: ASPIRIN

REACTIONS (3)
  - Gastrointestinal haemorrhage [Unknown]
  - Myocardial infarction [Not Recovered/Not Resolved]
  - Ulcer haemorrhage [Unknown]

NARRATIVE: CASE EVENT DATE: 2004
